FAERS Safety Report 7824015-6 (Version None)
Quarter: 2011Q4

REPORT INFORMATION
  Report Type: 
  Country: None (occurrence: None)
  Receive Date: 20111018
  Receipt Date: 20111018
  Transmission Date: 20120403
  Serious: Yes (Hospitalization)
  Sender: FDA-Public Use
  Company Number: None

PATIENT
  Sex: Male
  Weight: 85 kg

DRUGS (2)
  1. PERCOCET [Concomitant]
  2. CISPLATIN [Suspect]
     Dosage: 208 MG
     Dates: end: 20080818

REACTIONS (5)
  - FEEDING TUBE COMPLICATION [None]
  - CONSTIPATION [None]
  - VOMITING [None]
  - INFECTION [None]
  - PAIN [None]
